FAERS Safety Report 23763570 (Version 1)
Quarter: 2024Q2

REPORT INFORMATION
  Report Type: Spontaneous
  Country: US (occurrence: None)
  Receive Date: 20240419
  Receipt Date: 20240419
  Transmission Date: 20240717
  Serious: Yes (Other)
  Sender: FDA-Public Use
  Company Number: None

PATIENT
  Age: 40 Year
  Sex: Female
  Weight: 60.75 kg

DRUGS (6)
  1. BOTOX [Suspect]
     Active Substance: ONABOTULINUMTOXINA
     Route: 030
     Dates: start: 20240224
  2. DYSPORT [Suspect]
     Active Substance: ABOBOTULINUMTOXINA
  3. VITAMIN D [Concomitant]
     Active Substance: VITAMIN D NOS
  4. FISH OIL [Concomitant]
     Active Substance: FISH OIL
  5. proviotic [Concomitant]
  6. MAGNESIUM CITRATE [Concomitant]

REACTIONS (6)
  - Dysphagia [None]
  - Pain in jaw [None]
  - Myalgia [None]
  - Chronic sinusitis [None]
  - Ear infection [None]
  - Ear discomfort [None]

NARRATIVE: CASE EVENT DATE: 20240224
